FAERS Safety Report 10208168 (Version 1)
Quarter: 2014Q2

REPORT INFORMATION
  Report Type: Spontaneous
  Country: CH (occurrence: CH)
  Receive Date: 20140530
  Receipt Date: 20140530
  Transmission Date: 20141212
  Serious: Yes (Life-Threatening)
  Sender: FDA-Public Use
  Company Number: CH-WATSON-2014-11680

PATIENT
  Age: 2 Year
  Sex: Male

DRUGS (3)
  1. DEXAMETHASONE (UNKNOWN) [Suspect]
     Indication: PROPHYLAXIS
     Dosage: 1 MG, DAILY
     Route: 064
  2. FLUDROCORTISONE [Concomitant]
     Indication: PRODUCT USED FOR UNKNOWN INDICATION
     Dosage: UNKNOWN
     Route: 065
  3. HYDROCORTISONE [Concomitant]
     Indication: PRODUCT USED FOR UNKNOWN INDICATION
     Dosage: UNKNOWN
     Route: 065

REACTIONS (3)
  - Convulsion [Recovered/Resolved]
  - Central nervous system lesion [Recovering/Resolving]
  - Foetal exposure during pregnancy [Unknown]
